FAERS Safety Report 8338122-5 (Version None)
Quarter: 2012Q2

REPORT INFORMATION
  Report Type: 
  Country: None (occurrence: None)
  Receive Date: 20120504
  Receipt Date: 20120424
  Transmission Date: 20120825
  Serious: Yes (Hospitalization)
  Sender: FDA-Public Use
  Company Number: US-ABBOTT-12P-163-0928954-00

PATIENT
  Sex: Female
  Weight: 71.959 kg

DRUGS (6)
  1. ESCITALOPRAM [Concomitant]
     Indication: DEPRESSION
     Route: 048
     Dates: start: 20030101
  2. VICODIN [Suspect]
     Indication: PRODUCT USED FOR UNKNOWN INDICATION
  3. DILAUDID [Suspect]
     Indication: PRODUCT USED FOR UNKNOWN INDICATION
  4. UNKNOWN FOREST STUDY DRUG FOR COPD [Suspect]
     Indication: CHRONIC OBSTRUCTIVE PULMONARY DISEASE
     Route: 055
     Dates: start: 20111123, end: 20120130
  5. ESCITALOPRAM [Concomitant]
     Indication: ANXIETY
  6. PRAVASTATIN [Concomitant]
     Indication: HYPERCHOLESTEROLAEMIA
     Route: 048
     Dates: start: 20050101

REACTIONS (16)
  - HYPONATRAEMIA [None]
  - UNRESPONSIVE TO STIMULI [None]
  - INTENTIONAL DRUG MISUSE [None]
  - ADRENAL MASS [None]
  - DYSPNOEA [None]
  - BRONCHIAL WALL THICKENING [None]
  - HIATUS HERNIA [None]
  - OXYGEN SATURATION DECREASED [None]
  - LETHARGY [None]
  - OBSTRUCTIVE AIRWAYS DISORDER [None]
  - CHRONIC OBSTRUCTIVE PULMONARY DISEASE [None]
  - RESPIRATORY FAILURE [None]
  - DEPRESSED LEVEL OF CONSCIOUSNESS [None]
  - BACK PAIN [None]
  - OVERDOSE [None]
  - BRAIN NATRIURETIC PEPTIDE INCREASED [None]
